FAERS Safety Report 9587370 (Version 2)
Quarter: 2013Q4

REPORT INFORMATION
  Report Type: Report from Study
  Country: US (occurrence: GB)
  Receive Date: 20131003
  Receipt Date: 20131003
  Transmission Date: 20140711
  Serious: Yes (Other)
  Sender: FDA-Public Use
  Company Number: US-ABBVIE-13P-163-1117094-00

PATIENT
  Age: 37 Year
  Sex: Female

DRUGS (4)
  1. NORVIR [Suspect]
     Indication: ANTIRETROVIRAL THERAPY
     Dosage: 100 MG DAILY
     Route: 048
  2. REYATAZ [Suspect]
     Indication: ANTIRETROVIRAL THERAPY
     Dosage: 300 MG DAILY
     Route: 048
  3. EPZICOM [Suspect]
     Indication: ANTIRETROVIRAL THERAPY
     Route: 048
  4. VIREAD [Suspect]
     Indication: ANTIRETROVIRAL THERAPY
     Dosage: 245 MG DAILY
     Route: 048

REACTIONS (2)
  - Placental insufficiency [Unknown]
  - Oligohydramnios [Unknown]
